FAERS Safety Report 4622734-6 (Version None)
Quarter: 2005Q1

REPORT INFORMATION
  Report Type: 
  Country: None (occurrence: None)
  Receive Date: 20050328
  Receipt Date: 20050328
  Transmission Date: 20050727
  Serious: Yes (Hospitalization)
  Sender: FDA-Public Use
  Company Number: None

PATIENT
  Age: 82 Year
  Sex: Male
  Weight: 79.3795 kg

DRUGS (1)
  1. FENTANYL [Suspect]
     Indication: BACK PAIN
     Dosage: 1 Q 72 HRS
     Dates: start: 20041227, end: 20050211

REACTIONS (4)
  - DEHYDRATION [None]
  - NAUSEA [None]
  - RETCHING [None]
  - VOMITING [None]
